FAERS Safety Report 7717635-0 (Version None)
Quarter: 2011Q3

REPORT INFORMATION
  Report Type: 
  Country: None (occurrence: None)
  Receive Date: 20110830
  Receipt Date: 20110830
  Transmission Date: 20111222
  Serious: Yes (Life-Threatening)
  Sender: FDA-Public Use
  Company Number: None

PATIENT
  Age: 73 Year
  Sex: Female

DRUGS (1)
  1. PRADAXA [Suspect]
     Indication: ANTIPHOSPHOLIPID ANTIBODIES
     Dosage: 150 MG
     Route: 048

REACTIONS (4)
  - HAEMATOCRIT DECREASED [None]
  - ACUTE MYOCARDIAL INFARCTION [None]
  - PERICARDIAL EFFUSION [None]
  - PERICARDIAL HAEMORRHAGE [None]
